FAERS Safety Report 24774159 (Version 2)
Quarter: 2025Q1

REPORT INFORMATION
  Report Type: Spontaneous
  Country: US (occurrence: US)
  Receive Date: 20241225
  Receipt Date: 20250122
  Transmission Date: 20250408
  Serious: No
  Sender: SANOFI AVENTIS
  Company Number: US-SANOFI-02351420

PATIENT
  Age: 56 Year
  Sex: Male
  Weight: 113.64 kg

DRUGS (19)
  1. DUPIXENT [Suspect]
     Active Substance: DUPILUMAB
     Indication: Chronic obstructive pulmonary disease
     Dosage: 300 MG, QOW
     Route: 058
     Dates: start: 20250110
  2. DUPIXENT [Suspect]
     Active Substance: DUPILUMAB
     Indication: Illness
  3. LISINOPRIL [Concomitant]
     Active Substance: LISINOPRIL
  4. TRULICITY [Concomitant]
     Active Substance: DULAGLUTIDE
  5. AMOXICILLIN\CLAVULANIC ACID [Concomitant]
     Active Substance: AMOXICILLIN\CLAVULANIC ACID
  6. METOPROLOL SUCCINATE [Concomitant]
     Active Substance: METOPROLOL SUCCINATE
  7. FARXIGA [Concomitant]
     Active Substance: DAPAGLIFLOZIN PROPANEDIOL
  8. PANTOPRAZOLE SODIUM [Concomitant]
     Active Substance: PANTOPRAZOLE SODIUM
  9. BREZTRI [Concomitant]
     Active Substance: BUDESONIDE\FORMOTEROL\GLYCOPYRROLATE
  10. MOUNJARO [Concomitant]
     Active Substance: TIRZEPATIDE
  11. NICOTINE [Concomitant]
     Active Substance: NICOTINE
  12. TORSEMIDE [Concomitant]
     Active Substance: TORSEMIDE
  13. AZITHROMYCIN [Concomitant]
     Active Substance: AZITHROMYCIN
  14. ALBUTEROL SULFATE [Concomitant]
     Active Substance: ALBUTEROL SULFATE
  15. JANUVIA [Concomitant]
     Active Substance: SITAGLIPTIN PHOSPHATE
  16. EPINEPHRINE [Concomitant]
     Active Substance: EPINEPHRINE
  17. SILDENAFIL CITRATE [Concomitant]
     Active Substance: SILDENAFIL CITRATE
  18. PREDNISONE [Concomitant]
     Active Substance: PREDNISONE
  19. XARELTO [Concomitant]
     Active Substance: RIVAROXABAN

REACTIONS (2)
  - Accidental exposure to product [Unknown]
  - Exposure via skin contact [Unknown]

NARRATIVE: CASE EVENT DATE: 20241220
